FAERS Safety Report 13291422 (Version 1)
Quarter: 2017Q1

REPORT INFORMATION
  Report Type: Spontaneous
  Country: US (occurrence: US)
  Receive Date: 20170303
  Receipt Date: 20170303
  Transmission Date: 20170428
  Serious: Yes (Hospitalization)
  Sender: FDA-Public Use
  Company Number: US-PROCTER_AND_GAMBLE-GS17022162

PATIENT
  Age: 82 Year
  Sex: Male

DRUGS (10)
  1. TIOTROPIUM [Concomitant]
     Active Substance: TIOTROPIUM
  2. FERROUS SULFATE. [Concomitant]
     Active Substance: FERROUS SULFATE
  3. OMEPRAZOLE. [Concomitant]
     Active Substance: OMEPRAZOLE
  4. ALPRAZOLAM. [Concomitant]
     Active Substance: ALPRAZOLAM
     Dosage: 0.25 MG, 2 /DAY
  5. DIPHENHYDRAMINE HCL [Suspect]
     Active Substance: DIPHENHYDRAMINE HYDROCHLORIDE
     Indication: SLEEP DISORDER
     Dosage: 25 MG, DAILY FOR TWO MONTHS
     Route: 048
  6. SENNA                              /00142201/ [Concomitant]
     Active Substance: SENNA LEAF
  7. SIMVASTATIN. [Concomitant]
     Active Substance: SIMVASTATIN
  8. FLUTICASONE PROPIONATE W/SALMETEROL [Concomitant]
     Active Substance: FLUTICASONE PROPIONATE\SALMETEROL XINAFOATE
  9. ASPIRIN. [Concomitant]
     Active Substance: ASPIRIN
  10. ALBUTEROL                          /00139501/ [Concomitant]
     Active Substance: ALBUTEROL

REACTIONS (1)
  - Hallucination, visual [Recovered/Resolved]
